FAERS Safety Report 9117344 (Version 2)
Quarter: 2013Q2

REPORT INFORMATION
  Report Type: Spontaneous
  Country: US (occurrence: US)
  Receive Date: 20130225
  Receipt Date: 20130410
  Transmission Date: 20140414
  Serious: No
  Sender: FDA-Public Use
  Company Number: US-BIOGENIDEC-2013BI016196

PATIENT
  Sex: Female

DRUGS (2)
  1. AVONEX [Suspect]
     Indication: MULTIPLE SCLEROSIS
     Route: 030
     Dates: start: 20080917
  2. AVONEX [Suspect]
     Indication: MULTIPLE SCLEROSIS
     Route: 030
     Dates: start: 20120613

REACTIONS (5)
  - Adverse drug reaction [Not Recovered/Not Resolved]
  - Migraine [Recovered/Resolved]
  - Local swelling [Not Recovered/Not Resolved]
  - Pain of skin [Recovered/Resolved]
  - Pain in extremity [Recovered/Resolved]
